FAERS Safety Report 10452287 (Version 1)
Quarter: 2014Q3

REPORT INFORMATION
  Report Type: Spontaneous
  Country: IN (occurrence: IN)
  Receive Date: 20140915
  Receipt Date: 20140915
  Transmission Date: 20150326
  Serious: Yes (Hospitalization, Other)
  Sender: FDA-Public Use
  Company Number: IN-PAR PHARMACEUTICAL, INC-2014SCPR009380

PATIENT

DRUGS (4)
  1. OLANZAPINE. [Suspect]
     Active Substance: OLANZAPINE
     Indication: DEPRESSION
     Dosage: 5 MG, / DAY
     Route: 065
  2. OLANZAPINE. [Suspect]
     Active Substance: OLANZAPINE
     Indication: PSYCHOTIC DISORDER
  3. ESCITALOPRAM [Suspect]
     Active Substance: ESCITALOPRAM OXALATE
     Indication: DEPRESSION
     Dosage: 10 MG, UNK
     Route: 065
  4. ESCITALOPRAM [Suspect]
     Active Substance: ESCITALOPRAM OXALATE
     Indication: PSYCHOTIC DISORDER

REACTIONS (7)
  - Hyponatraemia [Recovering/Resolving]
  - Tachycardia [Recovering/Resolving]
  - Pallor [Recovering/Resolving]
  - Leukocytosis [Recovering/Resolving]
  - Urinary retention [Recovering/Resolving]
  - Gait disturbance [Recovering/Resolving]
  - Dehydration [Recovering/Resolving]
